FAERS Safety Report 21726363 (Version 1)
Quarter: 2022Q4

REPORT INFORMATION
  Report Type: Spontaneous
  Country: FR (occurrence: FR)
  Receive Date: 20221214
  Receipt Date: 20221214
  Transmission Date: 20230112
  Serious: Yes (Hospitalization, Other)
  Sender: FDA-Public Use
  Company Number: FR-AFSSAPS-AVPA20220606

PATIENT
  Age: 43 Year
  Sex: Male

DRUGS (4)
  1. ALPRAZOLAM [Suspect]
     Active Substance: ALPRAZOLAM
     Indication: Product used for unknown indication
     Dosage: FOR 3 MONTHS CONSUMES 6 TABLETS OF 5 MG PER DAY (30MG/D)
     Route: 048
     Dates: start: 2017
  2. DAFALGAN CODEINE [Suspect]
     Active Substance: ACETAMINOPHEN\CODEINE PHOSPHATE
     Indication: Product used for unknown indication
     Dosage: 16 TABLETS PER DAY
     Route: 048
  3. HEROIN [Suspect]
     Active Substance: DIAMORPHINE
     Indication: Product used for unknown indication
     Dosage: 1 TO 2G PER WEEK OVER A DAY
     Route: 045
     Dates: start: 2016
  4. COCAINE [Concomitant]
     Active Substance: COCAINE
     Indication: Product used for unknown indication
     Dosage: 2 TO 3G FOR 2-3 DAYS EVERY MONTH
     Route: 045

REACTIONS (3)
  - Drug detoxification [Recovering/Resolving]
  - Drug dependence [Recovering/Resolving]
  - Drug abuse [Not Recovered/Not Resolved]

NARRATIVE: CASE EVENT DATE: 20210504
